FAERS Safety Report 6138487-9 (Version None)
Quarter: 2009Q1

REPORT INFORMATION
  Report Type: 
  Country: None (occurrence: None)
  Receive Date: 20090331
  Receipt Date: 20090326
  Transmission Date: 20090719
  Serious: Yes (Hospitalization)
  Sender: FDA-Public Use
  Company Number: US-BRISTOL-MYERS SQUIBB COMPANY-14540645

PATIENT
  Age: 49 Year
  Sex: Male
  Weight: 44 kg

DRUGS (3)
  1. CISPLATIN [Suspect]
     Indication: OESOPHAGEAL CARCINOMA
     Dosage: 1 COURSE= 1 WEEK,25MG/M2 ON DAYS 1,8,15,22,29,36
     Route: 042
     Dates: start: 20090302, end: 20090302
  2. TAXOL [Suspect]
     Indication: OESOPHAGEAL CARCINOMA
     Dosage: 1 COURSE= 1 WEEK, 50MG/M2 IV
     Route: 042
     Dates: start: 20090302, end: 20090302
  3. RADIATION THERAPY [Suspect]
     Indication: OESOPHAGEAL CARCINOMA
     Dosage: TOTAL DOSE TILL 12MAR09 =4680 CGY NO. OF FRACTIONS 26 NO. OF ELAPSED DAYS 2
     Dates: end: 20090312

REACTIONS (6)
  - DEHYDRATION [None]
  - HAEMOGLOBIN DECREASED [None]
  - OESOPHAGEAL PAIN [None]
  - OESOPHAGITIS [None]
  - PYREXIA [None]
  - WEIGHT DECREASED [None]
